FAERS Safety Report 6524295-3 (Version None)
Quarter: 2009Q4

REPORT INFORMATION
  Report Type: 
  Country: None (occurrence: None)
  Receive Date: 20091231
  Receipt Date: 20091221
  Transmission Date: 20100525
  Serious: Yes (Other)
  Sender: FDA-Public Use
  Company Number: US-MERCK-0912USA01555

PATIENT
  Age: 83 Year
  Sex: Female

DRUGS (8)
  1. JANUVIA [Suspect]
     Indication: DIABETES MELLITUS
     Route: 048
     Dates: start: 20070823, end: 20070910
  2. LESCOL XL [Concomitant]
     Route: 065
  3. PREDNISONE [Concomitant]
     Route: 065
  4. FUROSEMIDE [Concomitant]
     Route: 065
  5. LISINOPRIL [Concomitant]
     Route: 065
  6. CALCIUM (UNSPECIFIED) [Concomitant]
     Route: 065
  7. VITAMIN D (UNSPECIFIED) [Concomitant]
     Route: 065
  8. VITAMINS (UNSPECIFIED) [Concomitant]
     Route: 065

REACTIONS (7)
  - COUGH [None]
  - DYSPHONIA [None]
  - HEADACHE [None]
  - HYPERTHYROIDISM [None]
  - MALIGNANT MELANOMA [None]
  - OROPHARYNGEAL PAIN [None]
  - PERIPHERAL VASCULAR DISORDER [None]
